FAERS Safety Report 8318830-2 (Version None)
Quarter: 2012Q2

REPORT INFORMATION
  Report Type: 
  Country: None (occurrence: None)
  Receive Date: 20120427
  Receipt Date: 20090826
  Transmission Date: 20120825
  Serious: No
  Sender: FDA-Public Use
  Company Number: US-TEVA-2009009955

PATIENT
  Sex: Female
  Weight: 49.94 kg

DRUGS (3)
  1. VALIUM [Concomitant]
     Dates: start: 20090601
  2. NUVIGIL [Suspect]
     Indication: EPSTEIN-BARR VIRUS INFECTION
     Dosage: 150 MILLIGRAM;
     Route: 048
     Dates: start: 20090720
  3. TYLENOL [Concomitant]
     Dates: start: 20090101

REACTIONS (2)
  - NAUSEA [None]
  - DRUG TOLERANCE [None]
